FAERS Safety Report 18342555 (Version 1)
Quarter: 2020Q4

REPORT INFORMATION
  Report Type: Spontaneous
  Country: FR (occurrence: FR)
  Receive Date: 20201005
  Receipt Date: 20201005
  Transmission Date: 20210113
  Serious: Yes (Hospitalization, Other)
  Sender: FDA-Public Use
  Company Number: FR-SA-2020SA271443

PATIENT

DRUGS (3)
  1. DALACINE [CLINDAMYCIN PALMITATE HYDROCHLORIDE] [Suspect]
     Active Substance: CLINDAMYCIN PALMITATE HYDROCHLORIDE
     Indication: OSTEITIS
     Dosage: 1800 MG, QD
     Route: 048
     Dates: start: 20200731, end: 20200812
  2. RIFAMPICIN [Suspect]
     Active Substance: RIFAMPIN
     Indication: OSTEITIS
     Dosage: 600 MG, QD
     Route: 048
     Dates: start: 20200812, end: 20200818
  3. SULFAMETHOXAZOLE/TRIMETHOPRIM [Suspect]
     Active Substance: SULFAMETHOXAZOLE\TRIMETHOPRIM
     Indication: OSTEITIS
     Dosage: 2 DF, QD
     Route: 048
     Dates: start: 20200812, end: 20200818

REACTIONS (1)
  - Acute generalised exanthematous pustulosis [Recovered/Resolved]

NARRATIVE: CASE EVENT DATE: 20200812
